FAERS Safety Report 16737709 (Version 2)
Quarter: 2019Q3

REPORT INFORMATION
  Report Type: Spontaneous
  Country: IT (occurrence: IT)
  Receive Date: 20190823
  Receipt Date: 20190902
  Transmission Date: 20191005
  Serious: Yes (Death, Life-Threatening, Hospitalization, Other)
  Sender: FDA-Public Use
  Company Number: IT-BRISTOL-MYERS SQUIBB COMPANY-BMS-2019-079776

PATIENT
  Age: 78 Year
  Sex: Female

DRUGS (1)
  1. NIVOLUMAB [Suspect]
     Active Substance: NIVOLUMAB
     Indication: METASTATIC MALIGNANT MELANOMA
     Dosage: UNK UNK, QMO
     Route: 065

REACTIONS (10)
  - Myalgia [Recovering/Resolving]
  - Troponin increased [Unknown]
  - Coronary artery stenosis [Unknown]
  - Myositis [Fatal]
  - Myocarditis [Fatal]
  - Fatigue [Not Recovered/Not Resolved]
  - Hypertransaminasaemia [Unknown]
  - Blood creatine phosphokinase increased [Unknown]
  - Muscular weakness [Unknown]
  - Blood lactate dehydrogenase increased [Unknown]
